FAERS Safety Report 4320101-6 (Version None)
Quarter: 2004Q1

REPORT INFORMATION
  Report Type: 
  Country: None (occurrence: None)
  Receive Date: 20040317
  Receipt Date: 20040310
  Transmission Date: 20041129
  Serious: Yes (Other)
  Sender: FDA-Public Use
  Company Number: 2004203058US

PATIENT
  Sex: Female

DRUGS (2)
  1. DEPO-PROVERA [Suspect]
     Indication: CONTRACEPTION
     Dosage: 1 ST INJECTION, LAST INJECTION
     Dates: start: 19990601, end: 19990601
  2. DEPO-PROVERA [Suspect]
     Indication: CONTRACEPTION
     Dosage: 1 ST INJECTION, LAST INJECTION
     Dates: start: 20011201, end: 20011201

REACTIONS (1)
  - CEREBROVASCULAR ACCIDENT [None]
